FAERS Safety Report 8251342-3 (Version None)
Quarter: 2012Q2

REPORT INFORMATION
  Report Type: 
  Country: None (occurrence: None)
  Receive Date: 20120402
  Receipt Date: 20120323
  Transmission Date: 20120825
  Serious: Yes (Hospitalization)
  Sender: FDA-Public Use
  Company Number: MX-GLAXOSMITHKLINE-B0700483B

PATIENT
  Sex: Female
  Weight: 57 kg

DRUGS (3)
  1. CARBAMAZEPINE [Concomitant]
     Indication: EPILEPSY
     Dosage: 500MG PER DAY
     Dates: start: 20101110
  2. CLONAZEPAM [Concomitant]
     Indication: EPILEPSY
     Dosage: 2MG PER DAY
  3. RETIGABINE [Suspect]
     Indication: PARTIAL SEIZURES
     Dosage: 1050MG THREE TIMES PER DAY
     Route: 048
     Dates: start: 20070320

REACTIONS (1)
  - SOMATISATION DISORDER [None]
